FAERS Safety Report 6222069-4 (Version None)
Quarter: 2009Q2

REPORT INFORMATION
  Report Type: 
  Country: None (occurrence: None)
  Receive Date: 20090608
  Receipt Date: 20090608
  Transmission Date: 20091009
  Serious: No
  Sender: FDA-Public Use
  Company Number: None

PATIENT
  Age: 56 Year
  Sex: Female
  Weight: 51.7101 kg

DRUGS (2)
  1. BONIVA [Suspect]
     Indication: RESORPTION BONE INCREASED
     Dosage: 1 TABLET A MONTH
     Dates: start: 20080902, end: 20081102
  2. BONIVA [Suspect]
     Indication: RESORPTION BONE INCREASED
     Dosage: 1 TABLET A MONTH
     Dates: start: 20081002, end: 20081102

REACTIONS (3)
  - ABASIA [None]
  - ACTIVITIES OF DAILY LIVING IMPAIRED [None]
  - ARTHRITIS [None]
